FAERS Safety Report 7409006-1 (Version None)
Quarter: 2011Q2

REPORT INFORMATION
  Report Type: 
  Country: None (occurrence: None)
  Receive Date: 20110412
  Receipt Date: 20110406
  Transmission Date: 20111010
  Serious: Yes (Other)
  Sender: FDA-Public Use
  Company Number: US-PFIZER INC-2011060116

PATIENT
  Sex: Female

DRUGS (3)
  1. SUTENT [Suspect]
     Indication: METASTATIC RENAL CELL CARCINOMA
     Dosage: 50 MG, DAILY X 28 DAYS Q 42 DAYS
     Dates: start: 20110314, end: 20110404
  2. LOVENOX [Concomitant]
     Indication: THROMBOSIS
     Dosage: UNK
  3. AUGMENTIN [Concomitant]
     Indication: CELLULITIS
     Dosage: UNK
     Dates: start: 20110314

REACTIONS (2)
  - HYPOTHYROIDISM [None]
  - LYMPH GLAND INFECTION [None]
